FAERS Safety Report 8235793-9 (Version None)
Quarter: 2012Q1

REPORT INFORMATION
  Report Type: 
  Country: None (occurrence: None)
  Receive Date: 20120326
  Receipt Date: 20120320
  Transmission Date: 20120608
  Serious: Yes (Other)
  Sender: FDA-Public Use
  Company Number: US-PFIZER INC-2012055688

PATIENT
  Sex: Female
  Weight: 57 kg

DRUGS (12)
  1. GABAPENTIN [Suspect]
     Indication: PAIN
     Dosage: UNK
  2. HYDROCODONE [Suspect]
     Indication: PAIN
     Dosage: UNK
  3. LYRICA [Suspect]
     Indication: NEUROPATHY PERIPHERAL
     Dosage: 25 MG, DAILY
     Route: 048
     Dates: start: 20120226
  4. NAPROSYN [Suspect]
     Indication: PAIN
     Dosage: UNK
  5. VALIUM [Concomitant]
     Indication: MUSCLE SPASMS
     Dosage: UNK
  6. LYRICA [Suspect]
     Indication: PAIN
  7. MOTRIN [Suspect]
     Indication: PAIN
     Dosage: UNK
  8. NAPROXEN (ALEVE) [Suspect]
     Indication: PAIN
     Dosage: UNK
  9. VOLTAREN [Suspect]
     Indication: PAIN
     Dosage: UNK
  10. CELEBREX [Suspect]
     Indication: PAIN
     Dosage: 100 MG, 2X/DAY
     Route: 048
     Dates: start: 20110101
  11. MELATONIN [Concomitant]
     Dosage: UNK
  12. NITROFURANTOIN [Suspect]
     Indication: INFECTION
     Dosage: UNK

REACTIONS (22)
  - MENTAL IMPAIRMENT [None]
  - APHTHOUS STOMATITIS [None]
  - NONSPECIFIC REACTION [None]
  - WRONG TECHNIQUE IN DRUG USAGE PROCESS [None]
  - PAIN [None]
  - BURNING SENSATION [None]
  - DRUG INEFFECTIVE [None]
  - NERVOUSNESS [None]
  - DRY MOUTH [None]
  - INCORRECT DOSE ADMINISTERED [None]
  - MOBILITY DECREASED [None]
  - SPINAL CORD DISORDER [None]
  - GASTRIC DISORDER [None]
  - PARAESTHESIA [None]
  - INSOMNIA [None]
  - CONDITION AGGRAVATED [None]
  - NEURITIS [None]
  - HYPOKINESIA [None]
  - DIZZINESS [None]
  - ANXIETY [None]
  - PANIC ATTACK [None]
  - NAUSEA [None]
